FAERS Safety Report 16671858 (Version 1)
Quarter: 2019Q3

REPORT INFORMATION
  Report Type: Spontaneous
  Country: JP (occurrence: JP)
  Receive Date: 20190806
  Receipt Date: 20190806
  Transmission Date: 20191004
  Serious: Yes (Other)
  Sender: FDA-Public Use
  Company Number: JP-ROCHE-2364358

PATIENT
  Age: 21 Year
  Sex: Male

DRUGS (3)
  1. RITUXIMAB. [Suspect]
     Active Substance: RITUXIMAB
     Indication: HYPERSENSITIVITY VASCULITIS
  2. HUMAN IMMUNOGLOBULIN [Suspect]
     Active Substance: HUMAN IMMUNOGLOBULIN G
     Indication: HYPERSENSITIVITY VASCULITIS
     Route: 042
  3. RITUXIMAB. [Suspect]
     Active Substance: RITUXIMAB
     Indication: B-LYMPHOCYTE COUNT DECREASED
     Route: 065

REACTIONS (4)
  - Cytomegalovirus test positive [Unknown]
  - Roseolovirus test positive [Unknown]
  - Varicella zoster virus infection [Unknown]
  - Epstein-Barr virus infection [Unknown]
